FAERS Safety Report 19999860 (Version 3)
Quarter: 2022Q1

REPORT INFORMATION
  Report Type: Spontaneous
  Country: US (occurrence: US)
  Receive Date: 20211027
  Receipt Date: 20220131
  Transmission Date: 20220423
  Serious: No
  Sender: FDA-Public Use
  Company Number: US-LUPIN PHARMACEUTICALS INC.-2021-20185

PATIENT
  Sex: Male

DRUGS (1)
  1. PHENELZINE [Suspect]
     Active Substance: PHENELZINE
     Indication: Depression
     Dosage: UNK
     Route: 065

REACTIONS (2)
  - Product substitution issue [Unknown]
  - Drug ineffective [Unknown]
